FAERS Safety Report 8983125 (Version 2)
Quarter: 2013Q1

REPORT INFORMATION
  Report Type: Spontaneous
  Country: NG (occurrence: NG)
  Receive Date: 20121224
  Receipt Date: 20130218
  Transmission Date: 20140127
  Serious: Yes (Other)
  Sender: FDA-Public Use
  Company Number: NG-RANBAXY-2012RR-63385

PATIENT
  Sex: Female

DRUGS (3)
  1. SIMVOR [Suspect]
     Indication: DYSLIPIDAEMIA
     Dosage: 10 MG, QD, AT NIGHT
     Route: 065
     Dates: start: 2008
  2. SIMVOR [Suspect]
     Indication: DYSLIPIDAEMIA
     Dosage: 20 MG, QD, AT NIGHT
     Route: 065
  3. SIMVOR [Suspect]
     Indication: DYSLIPIDAEMIA
     Dosage: 10 MG, QD, AT NIGHT
     Route: 065

REACTIONS (4)
  - Memory impairment [Recovered/Resolved]
  - Muscle spasms [Unknown]
  - Speech disorder [Unknown]
  - Incoherent [Unknown]
